FAERS Safety Report 6468296-2 (Version None)
Quarter: 2009Q4

REPORT INFORMATION
  Report Type: 
  Country: None (occurrence: None)
  Receive Date: 20091124
  Receipt Date: 20091111
  Transmission Date: 20100525
  Serious: Yes (Death, Hospitalization)
  Sender: FDA-Public Use
  Company Number: 2009285510

PATIENT
  Age: 54 Year
  Sex: Female

DRUGS (4)
  1. FRAGMIN [Suspect]
     Indication: PULMONARY EMBOLISM
     Dosage: SUBCUTANEOUS
     Route: 058
     Dates: start: 20090616, end: 20090619
  2. ORLISTAT [Suspect]
     Indication: WEIGHT CONTROL
     Dosage: ORAL
     Route: 048
     Dates: start: 20090501, end: 20090701
  3. ACTIVELLE [Suspect]
     Indication: MENOPAUSAL SYMPTOMS
     Dosage: ORAL
     Route: 048
     Dates: start: 20090601
  4. EFAMOL (OENOTHERA BIENNIS, TOCOPHERYL ACETATE) [Suspect]
     Indication: MENOPAUSAL SYMPTOMS
     Dosage: ORAL
     Route: 048
     Dates: start: 20081001

REACTIONS (12)
  - ADRENAL NEOPLASM [None]
  - ANTI-PLATELET ANTIBODY POSITIVE [None]
  - APLASTIC ANAEMIA [None]
  - BONE MARROW FAILURE [None]
  - CEREBRAL HAEMORRHAGE [None]
  - CLOSTRIDIUM COLITIS [None]
  - DRUG INTERACTION [None]
  - ENTEROCOCCAL SEPSIS [None]
  - FATIGUE [None]
  - NASOPHARYNGITIS [None]
  - PANCYTOPENIA [None]
  - RENAL NEOPLASM [None]
